FAERS Safety Report 13652473 (Version 1)
Quarter: 2017Q2

REPORT INFORMATION
  Report Type: Spontaneous
  Country: US (occurrence: US)
  Receive Date: 20170614
  Receipt Date: 20170614
  Transmission Date: 20170830
  Serious: No
  Sender: FDA-Public Use
  Company Number: US-ROCHE-1349582

PATIENT
  Sex: Male

DRUGS (3)
  1. AVASTIN [Suspect]
     Active Substance: BEVACIZUMAB
     Indication: COLORECTAL CANCER
     Route: 065
  2. 5-FU [Concomitant]
     Active Substance: FLUOROURACIL
  3. XELODA [Suspect]
     Active Substance: CAPECITABINE
     Indication: COLORECTAL CANCER
     Dosage: 2 TABLETS AM AND 3 TABLETS PM
     Route: 048

REACTIONS (2)
  - Fatigue [Unknown]
  - Asthenia [Unknown]
